FAERS Safety Report 21872507 (Version 1)
Quarter: 2023Q1

REPORT INFORMATION
  Report Type: Spontaneous
  Country: US (occurrence: US)
  Receive Date: 20230117
  Receipt Date: 20230117
  Transmission Date: 20230418
  Serious: No
  Sender: FDA-Public Use
  Company Number: None

PATIENT
  Sex: Male

DRUGS (3)
  1. RIFAMPIN [Suspect]
     Active Substance: RIFAMPIN
     Indication: Mycobacterium avium complex infection
     Route: 065
  2. BUPRENORPHINE [Suspect]
     Active Substance: BUPRENORPHINE
     Indication: Mycobacterium avium complex infection
     Route: 065
  3. MOXIFLOXACIN [Concomitant]
     Active Substance: MOXIFLOXACIN
     Route: 065

REACTIONS (2)
  - Drug interaction [Unknown]
  - Product use in unapproved indication [Unknown]
